FAERS Safety Report 9667188 (Version 1)
Quarter: 2013Q4

REPORT INFORMATION
  Report Type: Spontaneous
  Country: US (occurrence: US)
  Receive Date: 20131104
  Receipt Date: 20131104
  Transmission Date: 20140711
  Serious: No
  Sender: FDA-Public Use
  Company Number: US-BIOGENIDEC-2013BI090356

PATIENT
  Age: 50 Year
  Sex: Female

DRUGS (20)
  1. TECFIDERA [Suspect]
     Indication: MULTIPLE SCLEROSIS
     Route: 048
     Dates: start: 20130902
  2. TECFIDERA [Suspect]
     Indication: MULTIPLE SCLEROSIS
     Route: 048
  3. 7 KETO [Concomitant]
  4. CLONAZEPAM [Concomitant]
  5. BACLOFEN [Concomitant]
  6. NEXIUM [Concomitant]
  7. LEXAPRO [Concomitant]
  8. VITAMIN K [Concomitant]
  9. FISH OIL [Concomitant]
  10. VITAMIN D [Concomitant]
  11. CALCIUM [Concomitant]
  12. OSTEO BI FLEX [Concomitant]
  13. BIOTIN [Concomitant]
  14. CO Q 10 [Concomitant]
  15. FOLIC ACID [Concomitant]
  16. MAGNESIUM [Concomitant]
  17. DHEA [Concomitant]
  18. B12 [Concomitant]
  19. ESTROVEN [Concomitant]
  20. VENASTAT [Concomitant]

REACTIONS (1)
  - Diarrhoea [Recovered/Resolved]
